FAERS Safety Report 7644398-X (Version None)
Quarter: 2011Q3

REPORT INFORMATION
  Report Type: 
  Country: None (occurrence: None)
  Receive Date: 20110729
  Receipt Date: 20110722
  Transmission Date: 20111222
  Serious: Yes (Life-Threatening, Hospitalization, Other)
  Sender: FDA-Public Use
  Company Number: CELGENEUS-087-21880-10113134

PATIENT
  Sex: Female

DRUGS (14)
  1. REVLIMID [Suspect]
     Dosage: 10 MILLIGRAM
     Route: 048
     Dates: start: 20110330, end: 20110408
  2. REVLIMID [Suspect]
     Dosage: 15 MILLIGRAM
     Route: 048
     Dates: start: 20101221, end: 20101222
  3. DEXAMETHASONE [Suspect]
     Dosage: 20 MILLIGRAM
     Route: 048
     Dates: start: 20101221, end: 20101222
  4. ZOMETA [Concomitant]
     Indication: MULTIPLE MYELOMA
     Dosage: 4 MILLIGRAM
     Route: 041
     Dates: start: 20101130, end: 20101130
  5. DEXAMETHASONE [Suspect]
     Dosage: 16 MILLIGRAM
     Route: 048
     Dates: start: 20110226
  6. DEXAMETHASONE [Suspect]
     Dosage: 16 MILLIGRAM
     Route: 048
     Dates: start: 20110330, end: 20110402
  7. TEICOPLANIN [Concomitant]
     Dosage: 400 MILLIGRAM
     Route: 041
     Dates: start: 20110411, end: 20110413
  8. REVLIMID [Suspect]
     Indication: MULTIPLE MYELOMA
     Dosage: 15 MILLIGRAM
     Route: 048
     Dates: start: 20100930, end: 20101020
  9. REVLIMID [Suspect]
     Dosage: 10 MILLIGRAM
     Route: 048
     Dates: start: 20110226, end: 20110318
  10. REVLIMID [Suspect]
     Dosage: 15 MILLIGRAM
     Route: 048
     Dates: start: 20101116, end: 20101130
  11. DEXAMETHASONE [Suspect]
     Indication: MULTIPLE MYELOMA
     Dosage: 20 MILLIGRAM
     Route: 048
     Dates: start: 20100930, end: 20101003
  12. DEXAMETHASONE [Suspect]
     Dosage: 20 MILLIGRAM
     Route: 048
     Dates: start: 20101116, end: 20101119
  13. DEXAMETHASONE [Suspect]
     Dosage: 16 MILLIGRAM
     Route: 048
     Dates: start: 20110125, end: 20110128
  14. REVLIMID [Suspect]
     Dosage: 10 MILLIGRAM
     Route: 048
     Dates: start: 20110125, end: 20110214

REACTIONS (7)
  - INFECTION [None]
  - SEPSIS [None]
  - THROMBOCYTOPENIA [None]
  - NEUTROPENIA [None]
  - RASH [None]
  - NEUTROPHIL COUNT DECREASED [None]
  - NEUROPATHY PERIPHERAL [None]
